FAERS Safety Report 25555051 (Version 2)
Quarter: 2025Q3

REPORT INFORMATION
  Report Type: Spontaneous
  Country: CN (occurrence: CN)
  Receive Date: 20250715
  Receipt Date: 20250929
  Transmission Date: 20251021
  Serious: Yes (Hospitalization)
  Sender: PFIZER
  Company Number: CN-PFIZER INC-PV202500082014

PATIENT
  Age: 22 Year
  Sex: Male

DRUGS (34)
  1. XYNTHA [Suspect]
     Active Substance: MOROCTOCOG ALFA
     Dosage: 500 IU, 1X/DAY (QD)
     Route: 040
     Dates: start: 20230809
  2. XYNTHA [Suspect]
     Active Substance: MOROCTOCOG ALFA
     Dosage: 500 IU, 1X/DAY (QD)
     Route: 040
     Dates: start: 20230830
  3. XYNTHA [Suspect]
     Active Substance: MOROCTOCOG ALFA
     Dosage: 500 IU, 1X/DAY (QD)
     Route: 040
     Dates: start: 20230913
  4. XYNTHA [Suspect]
     Active Substance: MOROCTOCOG ALFA
     Dosage: 500 IU, 1X/DAY (QD)
     Route: 040
     Dates: start: 20230927
  5. XYNTHA [Suspect]
     Active Substance: MOROCTOCOG ALFA
     Dosage: 500 IU, 1X/DAY (QD)
     Route: 040
     Dates: start: 20231011
  6. XYNTHA [Suspect]
     Active Substance: MOROCTOCOG ALFA
     Dosage: 500 IU, 1X/DAY (QD)
     Route: 040
     Dates: start: 20231108
  7. XYNTHA [Suspect]
     Active Substance: MOROCTOCOG ALFA
     Dosage: 500 IU, 1X/DAY (QD)
     Route: 040
     Dates: start: 20240221
  8. XYNTHA [Suspect]
     Active Substance: MOROCTOCOG ALFA
     Dosage: 500 IU, 1X/DAY (QD)
     Route: 040
     Dates: start: 20240313
  9. XYNTHA [Suspect]
     Active Substance: MOROCTOCOG ALFA
     Dosage: 500 IU, 1X/DAY (QD)
     Route: 040
     Dates: start: 20240417
  10. XYNTHA [Suspect]
     Active Substance: MOROCTOCOG ALFA
     Dosage: 500 IU, 1X/DAY (QD)
     Route: 040
     Dates: start: 20240511
  11. XYNTHA [Suspect]
     Active Substance: MOROCTOCOG ALFA
     Dosage: 500 IU, 1X/DAY (QD)
     Route: 040
     Dates: start: 20240612
  12. XYNTHA [Suspect]
     Active Substance: MOROCTOCOG ALFA
     Dosage: 500 IU, 1X/DAY (QD)
     Route: 040
     Dates: start: 20240801
  13. XYNTHA [Suspect]
     Active Substance: MOROCTOCOG ALFA
     Dosage: 500 IU, 1X/DAY (QD)
     Route: 040
     Dates: start: 20240822
  14. XYNTHA [Suspect]
     Active Substance: MOROCTOCOG ALFA
     Dosage: 500 IU, 1X/DAY (QD)
     Route: 040
     Dates: start: 20240905
  15. XYNTHA [Suspect]
     Active Substance: MOROCTOCOG ALFA
     Dosage: 1000 IU, 1X/DAY (QD)
     Route: 040
     Dates: start: 20240919
  16. XYNTHA [Suspect]
     Active Substance: MOROCTOCOG ALFA
     Dosage: 1000 IU, 1X/DAY (QD)
     Route: 040
     Dates: start: 20240928
  17. XYNTHA [Suspect]
     Active Substance: MOROCTOCOG ALFA
     Dosage: 1000 IU, 1X/DAY (QD)
     Route: 040
     Dates: start: 20241010
  18. XYNTHA [Suspect]
     Active Substance: MOROCTOCOG ALFA
     Dosage: 1000 IU, 1X/DAY (QD)
     Route: 040
     Dates: start: 20241017
  19. XYNTHA [Suspect]
     Active Substance: MOROCTOCOG ALFA
     Dosage: 1000 IU, 1X/DAY (QD)
     Route: 040
     Dates: start: 20241031
  20. XYNTHA [Suspect]
     Active Substance: MOROCTOCOG ALFA
     Dosage: 1000 IU, 1X/DAY (QD)
     Route: 040
     Dates: start: 20241114
  21. XYNTHA [Suspect]
     Active Substance: MOROCTOCOG ALFA
     Dosage: 1000 IU, 1X/DAY (QD)
     Route: 040
     Dates: start: 20241128
  22. XYNTHA [Suspect]
     Active Substance: MOROCTOCOG ALFA
     Dosage: 1000 IU, 1X/DAY (QD)
     Route: 040
     Dates: start: 20241205
  23. XYNTHA [Suspect]
     Active Substance: MOROCTOCOG ALFA
     Dosage: 1000 IU, 1X/DAY (QD)
     Route: 040
     Dates: start: 20241212
  24. XYNTHA [Suspect]
     Active Substance: MOROCTOCOG ALFA
     Dosage: 1000 IU, 1X/DAY (QD)
     Route: 040
     Dates: start: 20241219
  25. XYNTHA [Suspect]
     Active Substance: MOROCTOCOG ALFA
     Dosage: 1000 IU, 1X/DAY (QD)
     Route: 040
     Dates: start: 20241226
  26. XYNTHA [Suspect]
     Active Substance: MOROCTOCOG ALFA
     Dosage: 1000 IU, 1X/DAY (QD)
     Route: 040
     Dates: start: 20250114
  27. XYNTHA [Suspect]
     Active Substance: MOROCTOCOG ALFA
     Dosage: 2000 IU, 3X/DAY (Q8H)
     Route: 040
     Dates: start: 20250305
  28. XYNTHA [Suspect]
     Active Substance: MOROCTOCOG ALFA
     Dosage: 1000 IU, 2X/DAY (Q12H)
     Route: 040
     Dates: start: 20250307
  29. XYNTHA [Suspect]
     Active Substance: MOROCTOCOG ALFA
     Dosage: 1000 IU, 1X/DAY (QD)
     Route: 040
     Dates: start: 20250326
  30. XYNTHA [Suspect]
     Active Substance: MOROCTOCOG ALFA
     Dosage: 1000 IU, 1X/DAY (QD)
     Route: 040
     Dates: start: 20250409
  31. XYNTHA [Suspect]
     Active Substance: MOROCTOCOG ALFA
     Dosage: 1000 IU, 1X/DAY (QD)
     Route: 040
     Dates: start: 20250417
  32. XYNTHA [Suspect]
     Active Substance: MOROCTOCOG ALFA
     Dosage: 1000 IU, 1X/DAY (QD)
     Route: 040
     Dates: start: 20250507
  33. XYNTHA [Suspect]
     Active Substance: MOROCTOCOG ALFA
     Dosage: 1000 IU, 1X/DAY (QD)
     Route: 040
     Dates: start: 20250521
  34. XYNTHA [Suspect]
     Active Substance: MOROCTOCOG ALFA
     Dosage: 1000 IU, 1X/DAY (QD)
     Route: 040
     Dates: start: 20250528

REACTIONS (2)
  - Haemophilic arthropathy [Unknown]
  - Muscle atrophy [Unknown]
